FAERS Safety Report 7919591-9 (Version None)
Quarter: 2011Q4

REPORT INFORMATION
  Report Type: 
  Country: None (occurrence: None)
  Receive Date: 20111117
  Receipt Date: 20111108
  Transmission Date: 20120403
  Serious: Yes (Hospitalization)
  Sender: FDA-Public Use
  Company Number: US-ABBOTT-11P-163-0873475-00

PATIENT
  Sex: Female
  Weight: 77.18 kg

DRUGS (4)
  1. UNKNOWN MEDICATION [Concomitant]
     Indication: BLOOD PRESSURE
  2. UNKNOWN MEDICATION [Concomitant]
     Indication: BLOOD CHOLESTEROL
  3. HUMIRA [Suspect]
     Indication: RHEUMATOID ARTHRITIS
     Route: 058
     Dates: start: 20110601
  4. HUMIRA [Suspect]
     Indication: SYSTEMIC LUPUS ERYTHEMATOSUS

REACTIONS (2)
  - TINNITUS [None]
  - CEREBROVASCULAR ACCIDENT [None]
